FAERS Safety Report 6760327-5 (Version None)
Quarter: 2010Q2

REPORT INFORMATION
  Report Type: 
  Country: None (occurrence: None)
  Receive Date: 20100608
  Receipt Date: 20100602
  Transmission Date: 20101027
  Serious: Yes (Hospitalization, Other)
  Sender: FDA-Public Use
  Company Number: US-JNJFOC-20100601316

PATIENT
  Sex: Male
  Weight: 106.6 kg

DRUGS (5)
  1. SANDOZ FENTANYL TRANSDERMAL SYSTEM [Suspect]
     Indication: PAIN
     Route: 062
  2. SANDOZ FENTANYL TRANSDERMAL SYSTEM [Suspect]
     Dosage: (100+25)UG/HR
     Route: 062
  3. DURAGESIC-100 [Suspect]
     Indication: PAIN
     Route: 062
  4. SANDOZ FENTANYL TRANSDERMAL SYSTEM [Suspect]
     Dosage: (100+25)UG/HR
     Route: 062
  5. OXYCODONE [Concomitant]
     Indication: PAIN
     Route: 048

REACTIONS (11)
  - ARTHRITIS [None]
  - DRUG EFFECT DECREASED [None]
  - FEMUR FRACTURE [None]
  - HIATUS HERNIA [None]
  - INAPPROPRIATE SCHEDULE OF DRUG ADMINISTRATION [None]
  - NEUROPATHY PERIPHERAL [None]
  - PHARYNGITIS STREPTOCOCCAL [None]
  - PYREXIA [None]
  - RESPIRATORY DISORDER [None]
  - SPLENECTOMY [None]
  - WRONG TECHNIQUE IN DRUG USAGE PROCESS [None]
